FAERS Safety Report 14185816 (Version 2)
Quarter: 2018Q1

REPORT INFORMATION
  Report Type: Spontaneous
  Country: FR (occurrence: FR)
  Receive Date: 20171114
  Receipt Date: 20180105
  Transmission Date: 20180508
  Serious: Yes (Hospitalization)
  Sender: FDA-Public Use
  Company Number: FR-ROCHE-2019276

PATIENT
  Age: 72 Year
  Sex: Female

DRUGS (9)
  1. KARDEGIC [Concomitant]
     Active Substance: ASPIRIN DL-LYSINE
  2. ADENURIC [Concomitant]
     Active Substance: FEBUXOSTAT
  3. ZELITREX [Concomitant]
     Active Substance: VALACYCLOVIR HYDROCHLORIDE
  4. MABTHERA [Suspect]
     Active Substance: RITUXIMAB
     Indication: MUSCULAR WEAKNESS
     Route: 042
     Dates: start: 20170829, end: 20170829
  5. ALDACTONE [Concomitant]
     Active Substance: SPIRONOLACTONE
  6. MOPRAL [Concomitant]
     Active Substance: OMEPRAZOLE
  7. STAGID [Concomitant]
     Active Substance: METFORMIN PAMOATE
  8. MESTINON [Concomitant]
     Active Substance: PYRIDOSTIGMINE BROMIDE
  9. LEVOTHYROX [Concomitant]
     Active Substance: LEVOTHYROXINE

REACTIONS (6)
  - Off label use [Unknown]
  - Headache [Recovered/Resolved]
  - Intentional product use issue [Unknown]
  - Hyperthermia [Recovered/Resolved]
  - Abdominal pain [Recovered/Resolved]
  - Hypertension [Recovered/Resolved]

NARRATIVE: CASE EVENT DATE: 20170829
